FAERS Safety Report 24701059 (Version 1)
Quarter: 2024Q4

REPORT INFORMATION
  Report Type: Spontaneous
  Country: US (occurrence: None)
  Receive Date: 20241204
  Receipt Date: 20241204
  Transmission Date: 20250114
  Serious: Yes (Disabling, Other)
  Sender: Public
  Company Number: None

PATIENT
  Age: 29 Year
  Sex: Female

DRUGS (1)
  1. LUPRON [Suspect]
     Active Substance: LEUPROLIDE ACETATE
     Indication: Endometriosis
     Dates: start: 20221010, end: 20230320

REACTIONS (10)
  - Back pain [None]
  - Musculoskeletal chest pain [None]
  - Peripheral swelling [None]
  - Paraesthesia [None]
  - Sensory disturbance [None]
  - Dyspnoea [None]
  - Dizziness [None]
  - Pelvic pain [None]
  - Therapy interrupted [None]
  - Chest pain [None]

NARRATIVE: CASE EVENT DATE: 20230222
